FAERS Safety Report 8317173-0 (Version None)
Quarter: 2012Q2

REPORT INFORMATION
  Report Type: 
  Country: None (occurrence: None)
  Receive Date: 20120427
  Receipt Date: 20120419
  Transmission Date: 20120825
  Serious: Yes (Other)
  Sender: FDA-Public Use
  Company Number: US-US-EMD SERONO, INC.-7127505

PATIENT
  Sex: Female

DRUGS (2)
  1. IBUPROFEN (ADVIL) [Concomitant]
     Indication: PREMEDICATION
  2. REBIF [Suspect]
     Indication: MULTIPLE SCLEROSIS
     Route: 058
     Dates: start: 20070910

REACTIONS (10)
  - BURNING SENSATION [None]
  - HEADACHE [None]
  - GAIT DISTURBANCE [None]
  - PARAESTHESIA [None]
  - INJECTION SITE PAIN [None]
  - UPPER LIMB FRACTURE [None]
  - FALL [None]
  - PROCEDURAL PAIN [None]
  - INJECTION SITE ERYTHEMA [None]
  - INJECTION SITE INDURATION [None]
